FAERS Safety Report 5280464-4 (Version None)
Quarter: 2007Q1

REPORT INFORMATION
  Report Type: 
  Country: None (occurrence: None)
  Receive Date: 20061221
  Receipt Date: 20061120
  Transmission Date: 20070707
  Serious: No
  Sender: FDA-Public Use
  Company Number: SP01034

PATIENT
  Age: 49 Year
  Sex: Female
  Weight: 61.2356 kg

DRUGS (1)
  1. XIFAXAN [Suspect]
     Indication: COLITIS ULCERATIVE
     Dosage: 1200 MG/DAY (6 IN 1 D), ORAL
     Route: 048
     Dates: start: 20060907, end: 20060909

REACTIONS (2)
  - ABDOMINAL PAIN [None]
  - GAIT DISTURBANCE [None]
